FAERS Safety Report 7502707-6 (Version None)
Quarter: 2011Q2

REPORT INFORMATION
  Report Type: 
  Country: None (occurrence: None)
  Receive Date: 20110525
  Receipt Date: 20110518
  Transmission Date: 20111010
  Serious: Yes (Life-Threatening, Hospitalization, Other)
  Sender: FDA-Public Use
  Company Number: PHHY2011DE30381

PATIENT
  Age: 75 Year
  Sex: Female
  Weight: 86 kg

DRUGS (5)
  1. TORSEMIDE [Suspect]
     Dosage: 10 MG (2 DF) DAILY
     Route: 048
     Dates: start: 20070101, end: 20110118
  2. DIOVAN PROTECT [Suspect]
     Indication: HYPERTENSION
     Dosage: 2 DF, 160 MG DAILY
     Route: 048
     Dates: start: 20000101, end: 20110118
  3. SPIRONOLACTONE [Suspect]
     Dosage: 50 MG (0.5 DF) DAILY
     Route: 048
     Dates: start: 20100101, end: 20110118
  4. RASILEZ [Suspect]
     Dosage: 150 MG (2 DF DAILY)
     Route: 048
     Dates: start: 20070101, end: 20110118
  5. METFORMIN HCL [Suspect]
     Dosage: 500 MG, (2 DF DAILY)
     Route: 048
     Dates: start: 20101001, end: 20110118

REACTIONS (3)
  - RENAL FAILURE ACUTE [None]
  - PRESYNCOPE [None]
  - FATIGUE [None]
